FAERS Safety Report 7408130-7 (Version None)
Quarter: 2011Q1

REPORT INFORMATION
  Report Type: 
  Country: None (occurrence: None)
  Receive Date: 20110331
  Receipt Date: 20110303
  Transmission Date: 20110831
  Serious: Yes (Hospitalization, Other)
  Sender: FDA-Public Use
  Company Number: 2128643-2011-00021

PATIENT
  Sex: Female

DRUGS (1)
  1. CVS ALCOHOL SWABS [Suspect]
     Indication: INJECTION
     Dosage: DAILY

REACTIONS (2)
  - PRODUCT QUALITY ISSUE [None]
  - INJECTION SITE INFECTION [None]
